FAERS Safety Report 24431816 (Version 2)
Quarter: 2024Q4

REPORT INFORMATION
  Report Type: Report from Study
  Country: CN (occurrence: CN)
  Receive Date: 20241014
  Receipt Date: 20241202
  Transmission Date: 20250115
  Serious: Yes (Hospitalization)
  Sender: ROCHE
  Company Number: CN-ROCHE-10000056956

PATIENT
  Age: 54 Year
  Sex: Female
  Weight: 52.5 kg

DRUGS (1)
  1. POLATUZUMAB VEDOTIN [Suspect]
     Active Substance: POLATUZUMAB VEDOTIN
     Indication: Diffuse large B-cell lymphoma
     Dosage: DRUG ON 16/NOV/2024
     Route: 042
     Dates: start: 20240620

REACTIONS (11)
  - Pyrexia [Recovered/Resolved]
  - Mouth ulceration [Not Recovered/Not Resolved]
  - Asthenia [Unknown]
  - Nausea [Unknown]
  - White blood cell count decreased [Recovering/Resolving]
  - Fatigue [Recovering/Resolving]
  - Arthralgia [Recovered/Resolved]
  - Spinal pain [Recovered/Resolved]
  - Pain [Not Recovered/Not Resolved]
  - Poor quality sleep [Unknown]
  - Pyrexia [Recovered/Resolved]

NARRATIVE: CASE EVENT DATE: 20240808
